FAERS Safety Report 6796314-0 (Version None)
Quarter: 2010Q2

REPORT INFORMATION
  Report Type: 
  Country: None (occurrence: None)
  Receive Date: 20100624
  Receipt Date: 20100624
  Transmission Date: 20101027
  Serious: Yes (Other)
  Sender: FDA-Public Use
  Company Number: None

PATIENT
  Sex: Female

DRUGS (1)
  1. HYZAAR [Suspect]
     Indication: HYPERTENSION
     Dosage: 100/25 MG. ONE DAILY
     Dates: start: 20100617, end: 20100621

REACTIONS (2)
  - COUGH [None]
  - PRODUCT SUBSTITUTION ISSUE [None]
